FAERS Safety Report 19747976 (Version 1)
Quarter: 2021Q3

REPORT INFORMATION
  Report Type: Spontaneous
  Country: JP (occurrence: JP)
  Receive Date: 20210825
  Receipt Date: 20210825
  Transmission Date: 20211014
  Serious: Yes (Other)
  Sender: FDA-Public Use
  Company Number: JP-INSUD PHARMA-2108JP00902

PATIENT

DRUGS (3)
  1. MYCOPHENOLATE MOFETIL. [Concomitant]
     Active Substance: MYCOPHENOLATE MOFETIL
     Indication: DERMATOMYOSITIS
     Dosage: 1500 MILLIGRAM; DISCONTINUED DAY 17
  2. PREDNISONE. [Concomitant]
     Active Substance: PREDNISONE
     Indication: DERMATOMYOSITIS
     Dosage: 10 MILLIGRAM
  3. ACYCLOVIR. [Suspect]
     Active Substance: ACYCLOVIR
     Indication: HERPES ZOSTER
     Dosage: 750 MG/DAY
     Route: 042

REACTIONS (10)
  - Papule [Recovered/Resolved]
  - Pyrexia [Recovered/Resolved]
  - Erythema multiforme [Recovered/Resolved]
  - Erythema [Recovered/Resolved]
  - Skin plaque [Recovered/Resolved]
  - Rebound effect [Recovered/Resolved]
  - Herpes zoster reactivation [Recovered/Resolved]
  - Nuchal rigidity [Recovered/Resolved]
  - Herpes zoster meningitis [Recovered/Resolved]
  - Headache [Recovered/Resolved]
